FAERS Safety Report 6764120-9 (Version None)
Quarter: 2010Q2

REPORT INFORMATION
  Report Type: 
  Country: None (occurrence: None)
  Receive Date: 20100610
  Receipt Date: 20100517
  Transmission Date: 20101027
  Serious: Yes (Death)
  Sender: FDA-Public Use
  Company Number: A0739829A

PATIENT
  Age: 18 Year
  Sex: Female

DRUGS (2)
  1. PAXIL CR [Suspect]
     Indication: ANXIETY
     Route: 048
     Dates: start: 20060220
  2. ATIVAN [Concomitant]
     Dates: start: 20060220

REACTIONS (14)
  - ABNORMAL BEHAVIOUR [None]
  - ALCOHOL ABUSE [None]
  - ANXIETY [None]
  - APATHY [None]
  - ASTHENIA [None]
  - COMPLETED SUICIDE [None]
  - DEPRESSED MOOD [None]
  - DRUG ABUSE [None]
  - EMOTIONAL DISORDER [None]
  - FATIGUE [None]
  - INSOMNIA [None]
  - MEDICATION ERROR [None]
  - NIGHTMARE [None]
  - STRESS [None]
